FAERS Safety Report 8199413-4 (Version None)
Quarter: 2012Q1

REPORT INFORMATION
  Report Type: 
  Country: None (occurrence: None)
  Receive Date: 20120309
  Receipt Date: 20120306
  Transmission Date: 20120608
  Serious: Yes (Death, Hospitalization)
  Sender: FDA-Public Use
  Company Number: US-GILEAD-2012-0051131

PATIENT
  Sex: Male

DRUGS (10)
  1. LETAIRIS [Suspect]
     Indication: PULMONARY HYPERTENSION
     Dosage: 10 MG, QD
     Route: 048
     Dates: start: 20090529, end: 20120211
  2. LASIX [Concomitant]
  3. ZANTAC [Concomitant]
  4. DILTIAZEM HCL [Concomitant]
  5. SPIROLACTON [Concomitant]
  6. REMODULIN [Concomitant]
  7. DIGOXIN [Concomitant]
  8. FOLIC ACID [Concomitant]
  9. VIAGRA [Concomitant]
  10. COUMADIN [Concomitant]

REACTIONS (3)
  - RESPIRATORY FAILURE [None]
  - SEPSIS [None]
  - PNEUMONIA [None]
